FAERS Safety Report 9646674 (Version 1)
Quarter: 2013Q4

REPORT INFORMATION
  Report Type: Report from Study
  Country: CA (occurrence: CA)
  Receive Date: 20131027
  Receipt Date: 20131027
  Transmission Date: 20140711
  Serious: Yes (Life-Threatening)
  Sender: FDA-Public Use
  Company Number: CA-US-EMD SERONO, INC.-7245836

PATIENT
  Age: 14 Year
  Sex: Male
  Weight: 55 kg

DRUGS (3)
  1. SAIZEN [Suspect]
     Indication: GROWTH HORMONE DEFICIENCY
     Dates: start: 20100312, end: 20131016
  2. VALPROIC ACID [Concomitant]
     Indication: CONVULSION
     Dosage: 325MG IN THE MORNING/500MG IN THE EVENING
     Route: 048
     Dates: start: 200905
  3. CITALOPRAM [Concomitant]
     Indication: AGGRESSION
     Route: 048
     Dates: start: 2013

REACTIONS (1)
  - Acute lymphocytic leukaemia [Not Recovered/Not Resolved]
